FAERS Safety Report 4539385-4 (Version None)
Quarter: 2004Q4

REPORT INFORMATION
  Report Type: 
  Country: None (occurrence: None)
  Receive Date: 20041222
  Receipt Date: 20041210
  Transmission Date: 20050328
  Serious: Yes (Death, Hospitalization)
  Sender: FDA-Public Use
  Company Number: 2004AP03091

PATIENT
  Age: 54 Year
  Sex: Female

DRUGS (18)
  1. IRESSA [Suspect]
     Indication: LUNG ADENOCARCINOMA
     Dosage: 250 MG DAILY PO
     Route: 048
     Dates: start: 20040320, end: 20040524
  2. SENIRAN [Suspect]
     Indication: PAIN
     Dosage: 6 MG DAILY RC
  3. RITALIN [Suspect]
     Indication: PAIN
     Dosage: 10 MG DAILY PO
     Route: 048
  4. TRYPTANOL                                    /AUS/ [Suspect]
     Indication: DEPRESSIVE SYMPTOM
     Dosage: 10 MG DAILY PO
     Route: 048
  5. HORIZON [Suspect]
     Indication: DEPRESSIVE SYMPTOM
     Dosage: 5 MG DAILY PO
     Route: 048
  6. SILECE [Suspect]
     Indication: INSOMNIA
     Dosage: 1 MG DAILY PO
     Route: 048
  7. VOLTAREN [Concomitant]
  8. CEROCRAL [Concomitant]
  9. PARIET [Concomitant]
  10. RINDERON [Concomitant]
  11. DEPAS [Concomitant]
  12. BLOPRESS [Concomitant]
  13. NORVASC [Concomitant]
  14. CARBOPLATIN [Concomitant]
  15. TAXOL [Concomitant]
  16. RADIOTHERAPY [Concomitant]
  17. DUROTEP JANSSEN [Concomitant]
  18. ANPEC DAINIPPON [Concomitant]

REACTIONS (10)
  - ABNORMAL BEHAVIOUR [None]
  - DELIRIUM [None]
  - INCOHERENT [None]
  - LUNG ADENOCARCINOMA [None]
  - MALIGNANT NEOPLASM PROGRESSION [None]
  - MENTAL DISORDER [None]
  - PAIN [None]
  - RESPIRATORY ARREST [None]
  - RESPIRATORY FAILURE [None]
  - VOMITING [None]
